FAERS Safety Report 21578735 (Version 1)
Quarter: 2022Q4

REPORT INFORMATION
  Report Type: Spontaneous
  Country: DE (occurrence: DE)
  Receive Date: 20221110
  Receipt Date: 20221110
  Transmission Date: 20230112
  Serious: Yes (Other)
  Sender: FDA-Public Use
  Company Number: DE-EMBRYOTOX-202107929

PATIENT
  Sex: Female
  Weight: 55 kg

DRUGS (9)
  1. PREDNISOLONE [Suspect]
     Active Substance: PREDNISOLONE
     Indication: Natural killer cell count increased
     Dosage: 5 MILLIGRAM DAILY; 5 [MG/D ]
     Route: 065
  2. Comirnaty monovalent (BioNTech/Pfizer) [Concomitant]
     Indication: COVID-19 immunisation
     Dates: start: 20210611, end: 20210611
  3. Comirnaty monovalent (BioNTech/Pfizer) [Concomitant]
     Dates: start: 20210521, end: 20210521
  4. PROGESTERONE [Concomitant]
     Active Substance: PROGESTERONE
     Indication: Prophylaxis of abortion
     Dosage: 200 MILLIGRAM DAILY; 200 [MG/D ]
  5. BOOSTRIX POLIO [Concomitant]
     Active Substance: DIPHTHERIA AND TETANUS TOXOIDS AND ACELLULAR PERTUSSIS ADSORBED AND INACTIVATED POLIOVIRUS VACCINE
     Indication: Immunisation
     Dates: start: 20210623, end: 20210623
  6. LEVOTHYROXINE SODIUM [Concomitant]
     Active Substance: LEVOTHYROXINE SODIUM
     Indication: Autoimmune thyroiditis
     Dosage: 125 [UG/D (UP TO 88) ], DURATION : 273 DAYS
     Dates: start: 20201014, end: 20210714
  7. MIRTAZAPINE [Concomitant]
     Active Substance: MIRTAZAPINE
     Indication: Depression
     Dosage: 7.5 [MG/D (UP TO 1) ], DURATION : 233 DAYS
     Dates: start: 20201014, end: 20210604
  8. ASPIRIN [Concomitant]
     Active Substance: ASPIRIN
     Indication: Prophylaxis
     Dosage: 150 MILLIGRAM DAILY; 150 [MG/D ]
  9. INTRALIPID [Concomitant]
     Active Substance: EGG PHOSPHOLIPIDS\GLYCERIN\SOYBEAN OIL
     Indication: Natural killer cell count increased
     Dosage: 100 ML EVERY 2 WEEKS

REACTIONS (2)
  - Gestational diabetes [Unknown]
  - Exposure during pregnancy [Unknown]
